FAERS Safety Report 25969479 (Version 1)
Quarter: 2025Q4

REPORT INFORMATION
  Report Type: Spontaneous
  Country: US (occurrence: None)
  Receive Date: 20251028
  Receipt Date: 20251028
  Transmission Date: 20260118
  Serious: Yes (Disabling)
  Sender: FDA-CTU
  Company Number: None

PATIENT
  Age: 64 Year
  Sex: Female
  Weight: 63 kg

DRUGS (8)
  1. QULIPTA [Suspect]
     Active Substance: ATOGEPANT
     Indication: Migraine prophylaxis
     Dosage: FREQUENCY : AT BEDTIME;?
     Route: 048
     Dates: start: 20250121, end: 20251021
  2. SYNTHROID [Concomitant]
     Active Substance: LEVOTHYROXINE SODIUM
  3. ADVAIR HFA [Concomitant]
     Active Substance: FLUTICASONE PROPIONATE\SALMETEROL XINAFOATE
  4. COENZYME Q10 [Concomitant]
     Active Substance: DIETARY SUPPLEMENT\UBIDECARENONE
  5. MAGNESIUM GLYCINATE [Concomitant]
     Active Substance: MAGNESIUM GLYCINATE
  6. B-12 lozenge [Concomitant]
  7. VITAMIN D NOS [Concomitant]
     Active Substance: CHOLECALCIFEROL\ERGOCALCIFEROL
  8. VITAMIN B COMPLEX [Concomitant]
     Active Substance: CYANOCOBALAMIN\DEXPANTHENOL\NIACINAMIDE\PYRIDOXINE HYDROCHLORIDE\RIBOFLAVIN 5^-PHOSPHATE SODIUM\THIA

REACTIONS (7)
  - Myalgia [None]
  - Muscular weakness [None]
  - Gait inability [None]
  - Asthenia [None]
  - Fatigue [None]
  - Constipation [None]
  - Nausea [None]

NARRATIVE: CASE EVENT DATE: 20251013
